FAERS Safety Report 14745796 (Version 3)
Quarter: 2018Q2

REPORT INFORMATION
  Report Type: Spontaneous
  Country: HR (occurrence: HR)
  Receive Date: 20180411
  Receipt Date: 20180504
  Transmission Date: 20180711
  Serious: Yes (Death, Other)
  Sender: FDA-Public Use
  Company Number: HR-GLAXOSMITHKLINE-HR2018GSK054187

PATIENT
  Age: 66 Year
  Sex: Female
  Weight: 80 kg

DRUGS (12)
  1. PIGREL [Concomitant]
     Indication: ISCHAEMIC STROKE
     Dosage: 75 MG, QD
     Route: 048
  2. CLEXANE [Concomitant]
     Active Substance: ENOXAPARIN SODIUM
     Indication: ISCHAEMIC STROKE
     Dosage: 4000 UNK, QD
     Route: 058
  3. MEDROL [Concomitant]
     Active Substance: METHYLPREDNISOLONE
     Indication: ASTHMA
     Dosage: 40 MG, QD
  4. NIBEL [Concomitant]
     Indication: HYPERTENSION
     Dosage: 10 MG, QD
     Route: 048
  5. EPRI [Concomitant]
     Indication: HYPERLIPIDAEMIA
     Dosage: 20 MG, QD
     Route: 048
  6. ACIPAN [Concomitant]
     Active Substance: PANTOPRAZOLE SODIUM
     Indication: ASTHMA PROPHYLAXIS
     Dosage: 40 MG, QD
     Route: 048
  7. ACTRAPID [Concomitant]
     Active Substance: INSULIN HUMAN
     Indication: DIABETES MELLITUS
     Dosage: UNK
  8. TRIPLIXAM [Concomitant]
     Active Substance: AMLODIPINE BESYLATE\INDAPAMIDE\PERINDOPRIL ARGININE
     Indication: HYPERTENSION
     Dosage: 1 DF, QD
     Route: 048
  9. IPRATROPIUM AND SALBUTAMOL [Concomitant]
     Indication: ASTHMA
     Dosage: 1 DF, QID
     Route: 055
  10. MELARTH [Concomitant]
     Active Substance: MELOXICAM
     Indication: ASTHMA
     Dosage: 10 MG, QD
     Route: 048
  11. NUCALA [Suspect]
     Active Substance: MEPOLIZUMAB
     Indication: ASTHMA
     Dosage: 100 MG, CYC
     Route: 058
     Dates: start: 20170920, end: 20180111
  12. ASA [Concomitant]
     Active Substance: ASPIRIN
     Indication: ISCHAEMIC STROKE
     Dosage: 100 MG, QD
     Route: 048

REACTIONS (13)
  - Cognitive disorder [Unknown]
  - Dyspnoea [Unknown]
  - Immobilisation prolonged [Unknown]
  - Dysarthria [Unknown]
  - Aphasia [Unknown]
  - Cerebellar infarction [Fatal]
  - Loss of consciousness [Unknown]
  - Pulmonary embolism [Fatal]
  - Ischaemic stroke [Unknown]
  - Depressed level of consciousness [Unknown]
  - Confusional state [Unknown]
  - Loss of personal independence in daily activities [Unknown]
  - Dysphagia [Unknown]

NARRATIVE: CASE EVENT DATE: 20180316
